FAERS Safety Report 4743684-0 (Version None)
Quarter: 2005Q3

REPORT INFORMATION
  Report Type: 
  Country: None (occurrence: None)
  Receive Date: 20050812
  Receipt Date: 20050805
  Transmission Date: 20060218
  Serious: Yes (Other)
  Sender: FDA-Public Use
  Company Number: 200516110US

PATIENT
  Sex: Male
  Weight: 79 kg

DRUGS (3)
  1. KETEK [Suspect]
     Indication: SINUSITIS
     Route: 048
     Dates: start: 20050716, end: 20050804
  2. SERUMLIPIDREDUCING AGENTS [Concomitant]
     Dosage: DOSE: NOT PROVIDED
  3. UNKNOWN DRUG [Concomitant]
     Dosage: DOSE: NOT PROVIDED

REACTIONS (1)
  - HEART RATE IRREGULAR [None]
